FAERS Safety Report 9527262 (Version 2)
Quarter: 2013Q4

REPORT INFORMATION
  Report Type: Spontaneous
  Country: US (occurrence: US)
  Receive Date: 20130917
  Receipt Date: 20131007
  Transmission Date: 20140711
  Serious: Yes (Hospitalization)
  Sender: FDA-Public Use
  Company Number: US-BIOGENIDEC-2013BI088491

PATIENT
  Sex: Male

DRUGS (16)
  1. AVONEX [Suspect]
     Indication: MULTIPLE SCLEROSIS
     Route: 030
     Dates: start: 2011
  2. AVONEX [Suspect]
     Indication: MULTIPLE SCLEROSIS
     Route: 030
     Dates: start: 20120202
  3. ASPIRIN [Concomitant]
  4. CARVEDILOL [Concomitant]
  5. CLODERM [Concomitant]
  6. CYCLOBENZAPRINE HCL [Concomitant]
  7. EFFIENT [Concomitant]
  8. FUROSEMIDE [Concomitant]
  9. LEVOTHYROXINE SODIUM [Concomitant]
  10. MECLIZINE HCL [Concomitant]
  11. METHOCARBAMOL [Concomitant]
  12. MONTEFUKAST SODIUM [Concomitant]
  13. OMEPRAZOLE [Concomitant]
  14. PERICOLACE [Concomitant]
  15. PLAVIX [Concomitant]
  16. POTASSIUM CHLORIDE [Concomitant]

REACTIONS (1)
  - Fall [Recovered/Resolved]
